FAERS Safety Report 10695626 (Version 3)
Quarter: 2016Q1

REPORT INFORMATION
  Report Type: Spontaneous
  Country: US (occurrence: US)
  Receive Date: 20150107
  Receipt Date: 20160314
  Transmission Date: 20160525
  Serious: Yes (Other)
  Sender: FDA-Public Use
  Company Number: US-PFIZER INC-2015003122

PATIENT
  Age: 48 Year
  Sex: Female
  Weight: 92 kg

DRUGS (2)
  1. ALEVE [Concomitant]
     Active Substance: NAPROXEN SODIUM
     Indication: BACK PAIN
     Dosage: UNK, DAILY (2 PER DAY)
     Dates: start: 2009
  2. LIPITOR [Suspect]
     Active Substance: ATORVASTATIN CALCIUM
     Indication: BLOOD CHOLESTEROL INCREASED
     Dosage: UNK, AS DIRECTED, DAILY
     Route: 048
     Dates: start: 20110321, end: 20120109

REACTIONS (1)
  - Type 2 diabetes mellitus [Not Recovered/Not Resolved]

NARRATIVE: CASE EVENT DATE: 20120713
